FAERS Safety Report 21660674 (Version 7)
Quarter: 2023Q1

REPORT INFORMATION
  Report Type: Report from Study
  Country: US (occurrence: US)
  Receive Date: 20221130
  Receipt Date: 20230324
  Transmission Date: 20230417
  Serious: Yes (Hospitalization)
  Sender: FDA-Public Use
  Company Number: US-002147023-NVSC2022US277747

PATIENT
  Sex: Female

DRUGS (1)
  1. PIQRAY [Suspect]
     Active Substance: ALPELISIB
     Indication: Product used for unknown indication
     Dosage: 200 MG, QD
     Route: 048

REACTIONS (7)
  - Pericardial effusion [Unknown]
  - Frequent bowel movements [Unknown]
  - Feeling abnormal [Unknown]
  - Diarrhoea [Unknown]
  - Asthenia [Unknown]
  - Blood potassium decreased [Unknown]
  - Product use issue [Unknown]
